FAERS Safety Report 9700688 (Version 2)
Quarter: 2013Q4

REPORT INFORMATION
  Report Type: Spontaneous
  Country: IT (occurrence: IT)
  Receive Date: 20131121
  Receipt Date: 20131209
  Transmission Date: 20140711
  Serious: Yes (Life-Threatening)
  Sender: FDA-Public Use
  Company Number: PHHY2013IT132097

PATIENT
  Age: 80 Year
  Sex: Female

DRUGS (6)
  1. LEPONEX [Suspect]
     Indication: ACCIDENTAL EXPOSURE TO PRODUCT
     Dosage: 25 MG, ONCE/SINGLE
     Route: 048
     Dates: start: 20131016, end: 20131016
  2. RIVOTRIL [Suspect]
     Indication: ACCIDENTAL EXPOSURE TO PRODUCT
     Dosage: 1 MG, ONCE/SINGLE
     Route: 048
     Dates: start: 20131016, end: 20131016
  3. NEBIVOLOL [Concomitant]
     Dosage: UNK UKN, UNK
  4. VALSARTAN [Concomitant]
     Dosage: UNK UKN, UNK
  5. LERCANIDIPINE [Concomitant]
     Dosage: UNK UKN, UNK
  6. SIMVASTATIN [Concomitant]
     Dosage: UNK UKN, UNK

REACTIONS (1)
  - Coma [Recovered/Resolved]
